FAERS Safety Report 7087957-8 (Version None)
Quarter: 2010Q4

REPORT INFORMATION
  Report Type: 
  Country: None (occurrence: None)
  Receive Date: 20101108
  Receipt Date: 20101028
  Transmission Date: 20110411
  Serious: Yes (Death, Hospitalization, Other)
  Sender: FDA-Public Use
  Company Number: US-US-EMD SERONO, INC.-230790J07USA

PATIENT
  Sex: Female
  Weight: 67 kg

DRUGS (5)
  1. REBIF [Suspect]
     Indication: OFF LABEL USE
     Route: 058
     Dates: start: 20070916, end: 20090801
  2. REBIF [Suspect]
     Dates: end: 20090801
  3. NIACIN [Concomitant]
     Indication: HYPERLIPIDAEMIA
     Route: 048
     Dates: end: 20070101
  4. TEGRETOL [Concomitant]
     Indication: TRIGEMINAL NEURALGIA
     Route: 048
     Dates: end: 20070101
  5. PREDNISONE [Concomitant]
     Dates: end: 20090801

REACTIONS (5)
  - GASTROINTESTINAL DISORDER [None]
  - HEPATIC ENZYME INCREASED [None]
  - HEPATIC NECROSIS [None]
  - MULTIPLE SCLEROSIS [None]
  - PARKINSON'S DISEASE [None]
